FAERS Safety Report 8312374 (Version 2)
Quarter: 2015Q2

REPORT INFORMATION
  Report Type: Spontaneous
  Country: US (occurrence: US)
  Receive Date: 20111227
  Receipt Date: 20150609
  Transmission Date: 20150821
  Serious: Yes (Hospitalization, Other)
  Sender: FDA-Public Use
  Company Number: US-ASTRAZENECA-2011SE76597

PATIENT
  Age: 70 Year
  Sex: Female
  Weight: 80.7 kg

DRUGS (4)
  1. CRESTOR [Suspect]
     Active Substance: ROSUVASTATIN CALCIUM
     Indication: BLOOD CHOLESTEROL INCREASED
     Route: 048
  2. LEVOTHYROXINE [Concomitant]
     Active Substance: LEVOTHYROXINE
     Indication: THYROID DISORDER
     Route: 048
  3. BLOOD PRESSURE PILL [Concomitant]
     Route: 048
     Dates: start: 2011
  4. NOVO NORDISK 70 30 INSULIN [Concomitant]
     Indication: DIABETES MELLITUS
     Route: 050
     Dates: start: 1993

REACTIONS (4)
  - Neoplasm malignant [Unknown]
  - Weight decreased [Unknown]
  - Adverse event [Recovered/Resolved]
  - Diabetes mellitus [Unknown]

NARRATIVE: CASE EVENT DATE: 2014
